FAERS Safety Report 6535357-9 (Version None)
Quarter: 2010Q1

REPORT INFORMATION
  Report Type: 
  Country: None (occurrence: None)
  Receive Date: 20100111
  Receipt Date: 20100111
  Transmission Date: 20100710
  Serious: No
  Sender: FDA-Public Use
  Company Number: None

PATIENT
  Age: 55 Year
  Sex: Female
  Weight: 77.1115 kg

DRUGS (1)
  1. ZICAM NASAL GEL [Suspect]
     Indication: NASOPHARYNGITIS
     Dosage: AS DIRECT 1 SPRAY ONCE NASAL
     Route: 045
     Dates: start: 20081113, end: 20081113

REACTIONS (8)
  - AGEUSIA [None]
  - ANOSMIA [None]
  - BURNING SENSATION [None]
  - EYE PAIN [None]
  - FACIAL PAIN [None]
  - HEADACHE [None]
  - HYPOGEUSIA [None]
  - RHINALGIA [None]
